FAERS Safety Report 9254276 (Version 1)
Quarter: 2013Q1

REPORT INFORMATION
  Report Type: Spontaneous
  Country: US (occurrence: None)
  Receive Date: 20121203
  Receipt Date: 20121203
  Transmission Date: 20140127
  Serious: Yes (Hospitalization)
  Sender: FDA-Public Use
  Company Number: 1209USA001354

PATIENT
  Age: 79 Year
  Sex: Female

DRUGS (2)
  1. JANUMET [Suspect]
     Indication: DIABETES MELLITUS
     Route: 048
     Dates: start: 2011, end: 20120807
  2. ATENOLOL (+) CHLORTHALIDONE (ATENOLOL, CHLORTHALIDONE) [Concomitant]

REACTIONS (1)
  - Pancreatitis [None]
